FAERS Safety Report 7941478-6 (Version None)
Quarter: 2011Q4

REPORT INFORMATION
  Report Type: 
  Country: None (occurrence: None)
  Receive Date: 20111128
  Receipt Date: 20111117
  Transmission Date: 20120403
  Serious: Yes (Hospitalization, Other)
  Sender: FDA-Public Use
  Company Number: BE-UCBSA-038630

PATIENT
  Age: 62 Year
  Sex: Male
  Weight: 81 kg

DRUGS (13)
  1. NEUPRO [Suspect]
     Dosage: 0 MG
     Dates: start: 20110801, end: 20110901
  2. ROPINIROLE [Concomitant]
     Dates: start: 20110101
  3. OMEPRAZOLE [Concomitant]
     Indication: PROPHYLAXIS AGAINST GASTROINTESTINAL ULCER
  4. ROPINIROLE [Concomitant]
     Indication: RESTLESS LEGS SYNDROME
  5. PRAMIPEXOLE DIHYDROCHLORIDE [Concomitant]
     Indication: RESTLESS LEGS SYNDROME
  6. NEUPRO [Suspect]
     Dosage: 2 MG
     Dates: start: 20100919, end: 20100901
  7. DICLOFENAC SODIUM [Concomitant]
     Indication: BACK PAIN
  8. NEUPRO [Suspect]
     Dosage: 2 OR 4 MG/DAY
     Dates: start: 20100924, end: 20101001
  9. GABAPENTIN [Concomitant]
     Indication: RESTLESS LEGS SYNDROME
  10. NEUPRO [Suspect]
     Dosage: 1X2 MG AND 0.5X2 MG
     Dates: start: 20101101, end: 20100101
  11. NEUPRO [Suspect]
     Dosage: 4 MG
     Dates: start: 20101201, end: 20110601
  12. NEUPRO [Suspect]
     Indication: RESTLESS LEGS SYNDROME
     Dosage: 4 MG
     Dates: start: 20100101, end: 20100101
  13. NEUPRO [Suspect]
     Dosage: 2 MG
     Dates: start: 20110601, end: 20110701

REACTIONS (6)
  - BALANCE DISORDER [None]
  - GAIT DISTURBANCE [None]
  - MUSCULAR WEAKNESS [None]
  - HALLUCINATION [None]
  - PARAESTHESIA [None]
  - DYSTONIA [None]
